FAERS Safety Report 8087598-X (Version None)
Quarter: 2012Q1

REPORT INFORMATION
  Report Type: 
  Country: None (occurrence: None)
  Receive Date: 20120128
  Receipt Date: 20110525
  Transmission Date: 20120608
  Serious: No
  Sender: FDA-Public Use
  Company Number: US-ABBOTT-11P-163-0728482-00

PATIENT
  Age: 69 Year
  Sex: Female

DRUGS (7)
  1. ASACOL [Concomitant]
     Indication: CROHN'S DISEASE
  2. ATENOLOL [Concomitant]
     Indication: HYPERTENSION
  3. ATENOLOL [Concomitant]
     Indication: MITRAL VALVE DISEASE
  4. ATIVAN [Concomitant]
     Indication: ANXIETY
  5. PREDNISONE TAB [Concomitant]
     Indication: CROHN'S DISEASE
     Dosage: 1 EVERY OTHER DAY
  6. HUMIRA [Suspect]
     Indication: CROHN'S DISEASE
     Dosage: LOADING DOSE
     Dates: start: 20110518
  7. TRAMADOL HCL [Concomitant]
     Indication: PAIN

REACTIONS (3)
  - ARTHRALGIA [None]
  - PAIN IN EXTREMITY [None]
  - PAIN [None]
